FAERS Safety Report 15153671 (Version 3)
Quarter: 2018Q3

REPORT INFORMATION
  Report Type: Spontaneous
  Country: JP (occurrence: JP)
  Receive Date: 20180717
  Receipt Date: 20180918
  Transmission Date: 20181010
  Serious: Yes (Hospitalization)
  Sender: FDA-Public Use
  Company Number: JP-GLAXOSMITHKLINE-JP2018JPN123126

PATIENT
  Age: 73 Year
  Sex: Female
  Weight: 64 kg

DRUGS (6)
  1. ATORVASTATIN [Concomitant]
     Active Substance: ATORVASTATIN
     Dosage: UNK
     Route: 048
  2. SERETIDE [Suspect]
     Active Substance: FLUTICASONE PROPIONATE\SALMETEROL XINAFOATE
     Dosage: UNK
     Route: 055
     Dates: start: 201802, end: 20180219
  3. THEOPHYLLINE [Concomitant]
     Active Substance: THEOPHYLLINE ANHYDROUS
     Dosage: UNK
     Route: 048
  4. SERETIDE [Suspect]
     Active Substance: FLUTICASONE PROPIONATE\SALMETEROL XINAFOATE
     Indication: ASTHMA
     Dosage: UNK
     Route: 055
     Dates: start: 20140626, end: 20180214
  5. ASTOMARI [Concomitant]
     Dosage: UNK
     Route: 048
  6. AMLODIPINE OD TABLETS [Concomitant]
     Active Substance: AMLODIPINE BESYLATE
     Dosage: UNK
     Route: 048

REACTIONS (11)
  - Dysgeusia [Recovering/Resolving]
  - Dyspnoea exertional [Unknown]
  - Weight decreased [Unknown]
  - Sputum abnormal [Unknown]
  - Glossitis [Recovering/Resolving]
  - Parosmia [Not Recovered/Not Resolved]
  - Oedema peripheral [Unknown]
  - Product use in unapproved indication [Unknown]
  - Cough [Unknown]
  - Tachycardia [Unknown]
  - Imaging procedure abnormal [Unknown]

NARRATIVE: CASE EVENT DATE: 2017
